FAERS Safety Report 5233543-1 (Version None)
Quarter: 2007Q1

REPORT INFORMATION
  Report Type: 
  Country: None (occurrence: None)
  Receive Date: 20061208
  Receipt Date: 20060306
  Transmission Date: 20070707
  Serious: Yes (Other)
  Sender: FDA-Public Use
  Company Number: 2006UW03810

PATIENT
  Age: 53 Year
  Sex: Female
  Weight: 74.842 kg

DRUGS (3)
  1. CRESTOR [Suspect]
     Indication: BLOOD CHOLESTEROL INCREASED
     Dates: start: 20051125, end: 20051207
  2. CRESTOR [Suspect]
     Indication: BLOOD CHOLESTEROL INCREASED
     Dates: start: 20051212, end: 20051215
  3. VERAPAMIL [Concomitant]

REACTIONS (4)
  - BACK PAIN [None]
  - MUSCLE SPASMS [None]
  - MUSCLE STRAIN [None]
  - MYALGIA [None]
